FAERS Safety Report 6626663-8 (Version None)
Quarter: 2010Q1

REPORT INFORMATION
  Report Type: 
  Country: None (occurrence: None)
  Receive Date: 20100305
  Receipt Date: 20100219
  Transmission Date: 20100710
  Serious: Yes (Death, Hospitalization, Disabling)
  Sender: FDA-Public Use
  Company Number: DSA_42543_2010

PATIENT
  Age: 83 Year
  Sex: Female

DRUGS (19)
  1. ENALAPRIL MALEATE [Suspect]
     Indication: HYPERTENSION
     Dosage: (5 MG QD ORAL)
     Route: 048
     Dates: end: 20091104
  2. ADALAT CRONO         (ADALAT CR- NIFEDIPINE) [Suspect]
     Indication: HYPERTENSION
     Dosage: (20 MG BID ORAL)
     Route: 048
     Dates: end: 20091104
  3. CORINEAL (CORINAEL L SR- NIFEDIPINE) [Suspect]
     Indication: HYPERTENSION
     Dosage: (20 MG BID ORAL)
     Route: 048
     Dates: start: 20091105, end: 20100111
  4. PNEUMOVAX 23 /01694601/    (PNEUMOVAX 23) [Suspect]
     Indication: PROPHYLAXIS
     Dosage: (0.5 ML TOTAL SUBCUTANEOUS)
     Route: 058
     Dates: start: 20100107, end: 20100107
  5. GALENIC     /AMLODIPINE/BENAZEPRIL HCL/      (BENAZEPRIL HCL) [Suspect]
     Indication: HYPERTENSION
     Dosage: (5 MG QD ORAL)
     Route: 048
     Dates: start: 20091105, end: 20100111
  6. PRAVASTATIN          (PRAVASTATIN NA) [Suspect]
     Indication: LIPID METABOLISM DISORDER
     Dosage: (10 MG QD ORAL)
     Route: 048
     Dates: start: 20091105, end: 20100110
  7. GASMOTIN (GASMOTIN) [Suspect]
     Indication: GASTRITIS
     Dosage: (5 MG QD ORAL)
     Route: 048
     Dates: end: 20091104
  8. FAMOTIDINE [Suspect]
     Indication: GASTRITIS
     Dosage: (10 MG QD ORAL)
     Route: 048
     Dates: start: 20091105, end: 20100110
  9. MEDILAC-BEBE (LAC-B) 1 G (NOT SPECIFIED) [Suspect]
     Indication: GASTROINTESTINAL DISORDER THERAPY
     Dosage: (1 G TID ORAL)
     Route: 048
     Dates: start: 20091105, end: 20100110
  10. FERROUS SODIUM CITRATE          (SODIUM FERROUS CITRATE) [Suspect]
     Indication: ANAEMIA
     Dosage: (50 MG QD ORAL)
     Route: 048
     Dates: start: 20091105, end: 20100110
  11. MEVALOTIN         (MEVALOTIN- PRAVASTATIN NA) [Suspect]
     Indication: LIPID METABOLISM DISORDER
     Dosage: (10 MG QD ORAL)
     Route: 048
     Dates: end: 20091104
  12. GASMOTIN        (GASMOTIN) [Suspect]
     Indication: GASTRITIS
     Dosage: (0.5 G TID ORAL)
     Route: 048
     Dates: start: 20091105, end: 20100110
  13. FAMOTIDINE [Suspect]
     Indication: GASTRITIS
     Dosage: (10 MG QD ORAL)
     Route: 048
     Dates: end: 20091104
  14. MIYA-BM (MIYA BM) [Suspect]
     Indication: GASTROINTESTINAL DISORDER
     Dosage: (1 G TID ORAL)
     Route: 048
     Dates: end: 20091104
  15. FERROMIA          /00023520/ (FERROMIA) [Suspect]
     Indication: ANAEMIA
     Dosage: (50 MG QD ORAL)
     Route: 048
     Dates: end: 20091104
  16. EUGLUCON [Concomitant]
  17. SAXIZON [Concomitant]
  18. THEOPHYLLINE [Concomitant]
  19. TULOBUTEROL [Concomitant]

REACTIONS (15)
  - ANAEMIA [None]
  - ARRHYTHMIA [None]
  - ASTHMA [None]
  - BLOOD PRESSURE INCREASED [None]
  - BLOOD URINE PRESENT [None]
  - CARDIAC FAILURE [None]
  - CARDIO-RESPIRATORY ARREST [None]
  - DECREASED APPETITE [None]
  - EATING DISORDER [None]
  - HEART RATE INCREASED [None]
  - OEDEMA [None]
  - PRODUCTIVE COUGH [None]
  - PROTEIN URINE [None]
  - RENAL FAILURE [None]
  - URINE OUTPUT DECREASED [None]
